FAERS Safety Report 16257812 (Version 1)
Quarter: 2019Q2

REPORT INFORMATION
  Report Type: Spontaneous
  Country: FR (occurrence: FR)
  Receive Date: 20190430
  Receipt Date: 20190430
  Transmission Date: 20190711
  Serious: Yes (Hospitalization)
  Sender: FDA-Public Use
  Company Number: FR-JNJFOC-20190433596

PATIENT
  Age: 58 Year
  Sex: Male
  Weight: 73 kg

DRUGS (1)
  1. STELARA [Suspect]
     Active Substance: USTEKINUMAB
     Indication: SPONDYLITIS
     Route: 058
     Dates: start: 201802, end: 201808

REACTIONS (3)
  - Product use in unapproved indication [Unknown]
  - Weight decreased [Recovering/Resolving]
  - Off label use [Unknown]

NARRATIVE: CASE EVENT DATE: 2018
